FAERS Safety Report 8512850 (Version 2)
Quarter: 2012Q4

REPORT INFORMATION
  Report Type: 
  Country: US (occurrence: US)
  Receive Date: 20120413
  Receipt Date: 20121212
  Transmission Date: 20130627
  Serious: No
  Sender: FDA-Public Use
  Company Number: US-ASTRAZENECA-2011SE58391

PATIENT
  Age: 71 Year
  Sex: Female

DRUGS (4)
  1. SYMBICORT PMDI [Suspect]
     Dosage: 160/4.5MCG,UNKNOWN
     Route: 055
  2. SYMBICORT PMDI [Suspect]
     Route: 055
  3. NEXIUM [Suspect]
     Dosage: TWO TIMES A DAY
     Route: 048
  4. NEXIUM [Suspect]
     Dosage: ONE TIME A DAY
     Route: 048

REACTIONS (3)
  - Asthma [Unknown]
  - Gastrooesophageal reflux disease [Unknown]
  - Intentional drug misuse [Unknown]
